FAERS Safety Report 6516000-1 (Version None)
Quarter: 2009Q4

REPORT INFORMATION
  Report Type: 
  Country: None (occurrence: None)
  Receive Date: 20091223
  Receipt Date: 20091211
  Transmission Date: 20100525
  Serious: Yes (Other)
  Sender: FDA-Public Use
  Company Number: US-SANOFI-AVENTIS-A03200904605

PATIENT
  Age: 84 Year
  Sex: Female
  Weight: 55.4 kg

DRUGS (10)
  1. MULTAQ [Suspect]
     Indication: ATRIAL FIBRILLATION
     Dosage: UNIT DOSE: 400 MG
     Route: 048
     Dates: start: 20090922, end: 20090929
  2. COUMADIN [Concomitant]
     Indication: ATRIAL FIBRILLATION
     Route: 048
  3. PRAVACHOL [Concomitant]
     Route: 048
  4. NEBIVOLOL [Concomitant]
  5. HYDROCHLOROTHIAZIDE/SPIRONOLACTONE [Concomitant]
     Dosage: 25/25
     Route: 048
  6. HYDROCHLOROTHIAZIDE/SPIRONOLACTONE [Concomitant]
     Indication: HYPERTENSION
     Dosage: 25/25
     Route: 048
  7. MIRAPEX ^PHARMACIA + UPJOHN^ [Concomitant]
  8. SYNTHROID [Concomitant]
  9. FOSAMAX [Concomitant]
  10. NEURONTIN [Concomitant]

REACTIONS (5)
  - CARDIAC FAILURE [None]
  - CONDITION AGGRAVATED [None]
  - CONFUSIONAL STATE [None]
  - DYSPNOEA [None]
  - OEDEMA [None]
